FAERS Safety Report 9260148 (Version 2)
Quarter: 2013Q3

REPORT INFORMATION
  Report Type: Spontaneous
  Country: US (occurrence: US)
  Receive Date: 20130429
  Receipt Date: 20130814
  Transmission Date: 20140515
  Serious: Yes (Hospitalization, Disabling)
  Sender: FDA-Public Use
  Company Number: US-ASTRAZENECA-2013SE27702

PATIENT
  Age: 60 Year
  Sex: Female

DRUGS (3)
  1. NEXIUM [Suspect]
     Indication: GASTROOESOPHAGEAL REFLUX DISEASE
     Route: 048
     Dates: start: 1978, end: 2013
  2. NEXIUM [Suspect]
     Indication: GASTROOESOPHAGEAL REFLUX DISEASE
     Route: 048
     Dates: start: 20050415
  3. ZANTAC [Concomitant]

REACTIONS (20)
  - Migraine [Unknown]
  - Dysstasia [Unknown]
  - Abasia [Unknown]
  - Muscle spasms [Unknown]
  - Gastrointestinal disorder [Unknown]
  - Bone disorder [Unknown]
  - Osteoporosis [Unknown]
  - Multiple fractures [Unknown]
  - Bipolar disorder [Unknown]
  - Type 2 diabetes mellitus [Unknown]
  - Arthritis [Unknown]
  - Cardiovascular disorder [Unknown]
  - Rheumatoid arthritis [Unknown]
  - Bone density decreased [Unknown]
  - Vitamin D deficiency [Unknown]
  - Limb injury [Unknown]
  - Stress [Unknown]
  - Osteoarthritis [Unknown]
  - Menopause [Unknown]
  - Depression [Unknown]
